FAERS Safety Report 23408033 (Version 7)
Quarter: 2025Q1

REPORT INFORMATION
  Report Type: Report from Study
  Country: US (occurrence: US)
  Receive Date: 20240117
  Receipt Date: 20250217
  Transmission Date: 20250408
  Serious: Yes (Other)
  Sender: TAKEDA
  Company Number: US-TAKEDA-2024TUS003094

PATIENT
  Sex: Female

DRUGS (1)
  1. VEDOLIZUMAB [Suspect]
     Active Substance: VEDOLIZUMAB
     Indication: Crohn^s disease
     Dosage: 300 MILLIGRAM, Q4WEEKS

REACTIONS (11)
  - Crohn^s disease [Unknown]
  - Hypoacusis [Unknown]
  - Thinking abnormal [Unknown]
  - Sleep apnoea syndrome [Unknown]
  - Tooth abscess [Unknown]
  - Rotator cuff syndrome [Unknown]
  - Anxiety [Unknown]
  - Blood potassium abnormal [Unknown]
  - Inappropriate schedule of product administration [Unknown]
  - Off label use [Unknown]
  - Influenza [Unknown]
